FAERS Safety Report 11145949 (Version 1)
Quarter: 2015Q2

REPORT INFORMATION
  Report Type: Report from Study
  Country: FR (occurrence: FR)
  Receive Date: 20150528
  Receipt Date: 20150528
  Transmission Date: 20150821
  Serious: Yes (Hospitalization)
  Sender: FDA-Public Use
  Company Number: FR-GLAXOSMITHKLINE-FR2015GSK072852

PATIENT
  Age: 60 Year
  Sex: Male

DRUGS (9)
  1. TEMERIT [Concomitant]
     Active Substance: NEBIVOLOL
  2. TRIATEC [Concomitant]
     Active Substance: RAMIPRIL
     Dosage: 10 UNK, UNK
  3. KARDEGIC [Concomitant]
     Active Substance: ASPIRIN LYSINE
     Dosage: 75 UNK, UNK
  4. VASTEN [Concomitant]
     Active Substance: PRAVASTATIN SODIUM
  5. INEXIUM [Concomitant]
     Active Substance: ESOMEPRAZOLE
  6. PLAVIX [Concomitant]
     Active Substance: CLOPIDOGREL BISULFATE
  7. INEGY [Concomitant]
     Active Substance: EZETIMIBE\SIMVASTATIN
  8. OMEGA-3-ACID ETHYL ESTERS. [Suspect]
     Active Substance: OMEGA-3-ACID ETHYL ESTERS
     Indication: ISCHAEMIC HEART DISEASE PROPHYLAXIS
     Dosage: UNK
     Dates: start: 20070912, end: 20070920
  9. ATENOLOL. [Concomitant]
     Active Substance: ATENOLOL

REACTIONS (1)
  - Dyspnoea [Recovering/Resolving]

NARRATIVE: CASE EVENT DATE: 20121123
